FAERS Safety Report 11236879 (Version 1)
Quarter: 2015Q3

REPORT INFORMATION
  Report Type: Spontaneous
  Country: US (occurrence: US)
  Receive Date: 20150703
  Receipt Date: 20150703
  Transmission Date: 20151125
  Serious: No
  Sender: FDA-Public Use
  Company Number: US-TAKEDA-2015TUS007034

PATIENT
  Age: 38 Year
  Sex: Male
  Weight: 111.57 kg

DRUGS (3)
  1. CONTRAVE [Suspect]
     Active Substance: BUPROPION HYDROCHLORIDE\NALTREXONE HYDROCHLORIDE
     Indication: OBESITY
     Dosage: UNK
     Route: 048
     Dates: start: 20150429, end: 201505
  2. CONTRAVE [Suspect]
     Active Substance: BUPROPION HYDROCHLORIDE\NALTREXONE HYDROCHLORIDE
     Dosage: UNK
     Route: 048
     Dates: start: 201505, end: 201505
  3. CONTRAVE [Suspect]
     Active Substance: BUPROPION HYDROCHLORIDE\NALTREXONE HYDROCHLORIDE
     Dosage: 2 IN THE AM, 1 IN THE PM
     Route: 048
     Dates: start: 201505, end: 20150518

REACTIONS (2)
  - Anxiety [Unknown]
  - Anger [Unknown]

NARRATIVE: CASE EVENT DATE: 201505
